FAERS Safety Report 8319705-5 (Version None)
Quarter: 2012Q2

REPORT INFORMATION
  Report Type: 
  Country: None (occurrence: None)
  Receive Date: 20120427
  Receipt Date: 20120417
  Transmission Date: 20120825
  Serious: Yes (Other)
  Sender: FDA-Public Use
  Company Number: US-ELI_LILLY_AND_COMPANY-US201204005690

PATIENT
  Sex: Female

DRUGS (2)
  1. ACTOS [Concomitant]
  2. BYDUREON [Suspect]
     Dosage: 2 MG, WEEKLY (1/W)
     Route: 058
     Dates: start: 20120312, end: 20120319

REACTIONS (4)
  - INJECTION SITE SWELLING [None]
  - SWELLING FACE [None]
  - INJECTION SITE RASH [None]
  - BLOOD GLUCOSE INCREASED [None]
